FAERS Safety Report 5091658-5 (Version None)
Quarter: 2006Q3

REPORT INFORMATION
  Report Type: 
  Country: None (occurrence: None)
  Receive Date: 20060824
  Receipt Date: 20060623
  Transmission Date: 20061208
  Serious: Yes (Other)
  Sender: FDA-Public Use
  Company Number: 510#6#2006-00004

PATIENT
  Age: 54 Year
  Sex: Male

DRUGS (14)
  1. ALPROSTADIL [Suspect]
     Indication: PERIPHERAL ISCHAEMIA
     Dosage: 80 MCG (40 MCG 2 IN 1 DAY(S)); INTRAVENOUS DRIP
     Route: 041
     Dates: start: 20060606, end: 20060614
  2. DICLOFENAC SODIUM [Concomitant]
  3. TRAMADOL HCL [Concomitant]
  4. VERAPAMIL HCL [Concomitant]
  5. FUROSEMIDE [Concomitant]
  6. VALSARTAN [Concomitant]
  7. PANTOPRAZOLE SODIUM [Concomitant]
  8. CEFAZOLIN [Concomitant]
  9. AMPICILLIN-COMP (AMPICILLIN SODIUM, SULBACTAM SODIUM) [Concomitant]
  10. ACETYLSALICYLIC ACID [Concomitant]
  11. CLOPIDOGREL [Concomitant]
  12. ACE  INHIBITOR NOS [Concomitant]
  13. BETA BLOCKING AGENTS [Concomitant]
  14. NPH INSULIN [Concomitant]

REACTIONS (8)
  - ABSCESS [None]
  - CARDIAC FAILURE [None]
  - DYSPNOEA [None]
  - FOOT AMPUTATION [None]
  - IMPAIRED HEALING [None]
  - LEFT VENTRICULAR FAILURE [None]
  - PULMONARY CONGESTION [None]
  - PULMONARY OEDEMA [None]
